FAERS Safety Report 8097448-3 (Version None)
Quarter: 2012Q1

REPORT INFORMATION
  Report Type: 
  Country: None (occurrence: None)
  Receive Date: 20120128
  Receipt Date: 20110623
  Transmission Date: 20120608
  Serious: No
  Sender: FDA-Public Use
  Company Number: US-ABBOTT-11P-163-0734609-00

PATIENT
  Sex: Female
  Weight: 49.94 kg

DRUGS (6)
  1. PREVACID [Concomitant]
     Indication: GASTROOESOPHAGEAL REFLUX DISEASE
  2. VITAMIN D [Concomitant]
     Indication: PRODUCT USED FOR UNKNOWN INDICATION
  3. LEVOXYL [Concomitant]
     Indication: PRODUCT USED FOR UNKNOWN INDICATION
  4. HUMIRA [Suspect]
     Indication: ARTHRITIS
     Route: 058
     Dates: start: 20110504
  5. PREDNISONE TAB [Concomitant]
     Indication: PRODUCT USED FOR UNKNOWN INDICATION
     Dosage: TAPERING DOSE
  6. HUMIRA [Suspect]

REACTIONS (5)
  - ASTHENOPIA [None]
  - MUSCULOSKELETAL CHEST PAIN [None]
  - RASH MACULAR [None]
  - FLANK PAIN [None]
  - EYE PAIN [None]
